FAERS Safety Report 20994285 (Version 1)
Quarter: 2022Q2

REPORT INFORMATION
  Report Type: Spontaneous
  Country: JP (occurrence: JP)
  Receive Date: 20220622
  Receipt Date: 20220622
  Transmission Date: 20220721
  Serious: Yes (Hospitalization, Other)
  Sender: FDA-Public Use
  Company Number: None

PATIENT
  Age: 6 Decade
  Sex: Female

DRUGS (11)
  1. TACROLIMUS [Interacting]
     Active Substance: TACROLIMUS
     Indication: Immunosuppressant drug therapy
     Route: 065
  2. ITRACONAZOLE [Suspect]
     Active Substance: ITRACONAZOLE
     Indication: Antifungal prophylaxis
     Route: 048
  3. VORICONAZOLE [Suspect]
     Active Substance: VORICONAZOLE
     Indication: Product used for unknown indication
     Dosage: INITIALLY
     Route: 065
  4. VORICONAZOLE [Suspect]
     Active Substance: VORICONAZOLE
     Dosage: ON POST OPERATIVE DAY 58-63
     Route: 065
  5. VORICONAZOLE [Suspect]
     Active Substance: VORICONAZOLE
     Dosage: ON POST OPERATIVE DAY 64-70
     Route: 065
  6. VORICONAZOLE [Suspect]
     Active Substance: VORICONAZOLE
     Dosage: ON POST OPERATIVE DAY 71-74
     Route: 065
  7. VONOPRAZAN [Interacting]
     Active Substance: VONOPRAZAN
     Indication: Product used for unknown indication
     Route: 065
  8. ITRACONAZOLE [Interacting]
     Active Substance: ITRACONAZOLE
     Indication: Antifungal prophylaxis
     Dosage: 300 MILLIGRAM, QD
     Route: 065
  9. ITRACONAZOLE [Interacting]
     Active Substance: ITRACONAZOLE
     Dosage: 400 MILLIGRAM, QD
     Route: 065
  10. FAMOTIDINE [Interacting]
     Active Substance: FAMOTIDINE
     Indication: Product used for unknown indication
     Route: 065
  11. MYCOPHENOLATE MOFETIL [Concomitant]
     Active Substance: MYCOPHENOLATE MOFETIL
     Indication: Immunosuppressant drug therapy
     Route: 065

REACTIONS (6)
  - Nausea [Unknown]
  - Vomiting [Unknown]
  - Drug level decreased [Recovering/Resolving]
  - Drug level increased [Unknown]
  - Drug interaction [Unknown]
  - Taste disorder [Unknown]
